FAERS Safety Report 7294990-X (Version None)
Quarter: 2011Q1

REPORT INFORMATION
  Report Type: 
  Country: None (occurrence: None)
  Receive Date: 20110216
  Receipt Date: 20110209
  Transmission Date: 20110831
  Serious: Yes (Hospitalization)
  Sender: FDA-Public Use
  Company Number: IT-BRISTOL-MYERS SQUIBB COMPANY-15346620

PATIENT
  Age: 54 Year
  Sex: Male
  Weight: 85 kg

DRUGS (9)
  1. GEMZAR [Suspect]
     Indication: NON-SMALL CELL LUNG CANCER
     Dosage: LAST DOSE ON 28SEP10(22D) NO OF INF: 3
     Dates: start: 20100907, end: 20100928
  2. ILOPROST [Concomitant]
     Dates: start: 20101005, end: 20101013
  3. FONDAPARINUX SODIUM [Concomitant]
     Dates: start: 20101005
  4. CEFTRIAXONE [Concomitant]
     Dates: start: 20101005, end: 20101011
  5. TIOTROPIUM BROMIDE [Concomitant]
  6. PANTOPRAZOLE [Concomitant]
  7. CISPLATIN [Suspect]
     Indication: NON-SMALL CELL LUNG CANCER
     Dosage: LAST DOSE ON 28SEP10(22D) NO OF INF:2
     Dates: start: 20100907, end: 20100928
  8. SALMETEROL [Concomitant]
  9. METHYLPREDNISOLONE SODIUM SUCCINATE [Concomitant]
     Dosage: METILPREDNOSOLONA

REACTIONS (1)
  - ARTERIAL THROMBOSIS LIMB [None]
